FAERS Safety Report 5456304-7 (Version None)
Quarter: 2007Q3

REPORT INFORMATION
  Report Type: 
  Country: None (occurrence: None)
  Receive Date: 20070918
  Receipt Date: 20070918
  Transmission Date: 20080115
  Serious: Yes (Other)
  Sender: FDA-Public Use
  Company Number: A0682292A

PATIENT
  Age: 38 Year
  Sex: Female

DRUGS (1)
  1. ALLI [Suspect]
     Route: 065
     Dates: start: 20070903

REACTIONS (4)
  - ABDOMINAL PAIN LOWER [None]
  - PHARMACEUTICAL PRODUCT COMPLAINT [None]
  - RECTAL DISCHARGE [None]
  - RECTAL HAEMORRHAGE [None]
